FAERS Safety Report 4367055-4 (Version None)
Quarter: 2004Q2

REPORT INFORMATION
  Report Type: 
  Country: None (occurrence: None)
  Receive Date: 20040528
  Receipt Date: 20040524
  Transmission Date: 20050107
  Serious: Yes (Other)
  Sender: FDA-Public Use
  Company Number: US-JNJFOC-20040505612

PATIENT
  Age: 28 Year
  Sex: Female
  Weight: 93.9 kg

DRUGS (3)
  1. LEVAQUIN [Suspect]
  2. LEVAQUIN [Suspect]
     Indication: URINARY TRACT INFECTION
  3. EFFEXOR [Concomitant]

REACTIONS (4)
  - HYPERSENSITIVITY [None]
  - OPTIC NEURITIS [None]
  - RENAL FAILURE ACUTE [None]
  - VISUAL ACUITY REDUCED [None]
